FAERS Safety Report 5115348-5 (Version None)
Quarter: 2006Q3

REPORT INFORMATION
  Report Type: 
  Country: None (occurrence: None)
  Receive Date: 20060922
  Receipt Date: 20060914
  Transmission Date: 20061208
  Serious: Yes (Other)
  Sender: FDA-Public Use
  Company Number: GXKR2006FR05710

PATIENT
  Age: 73 Year
  Sex: Female

DRUGS (7)
  1. CARBOPLATIN [Suspect]
     Indication: OVARIAN CANCER METASTATIC
  2. TAXOL [Concomitant]
  3. NICARDIPINE (NICARDIPINE) [Concomitant]
  4. HYDROCHLOROTHIAZIDE W/IRBESARTAN HYDROCHLOROTHIAZIDE, IRBESARTAN) [Concomitant]
  5. MOCLOBEMIDE (MOCLOBEMIDE) [Concomitant]
  6. PRAZEPAM [Concomitant]
  7. BEZAFIBRATE (BEZAFIBRATE) [Concomitant]

REACTIONS (7)
  - COMPLEX REGIONAL PAIN SYNDROME [None]
  - DRUG INEFFECTIVE [None]
  - FASCIITIS [None]
  - NODULE [None]
  - OEDEMA PERIPHERAL [None]
  - POLYARTHRITIS [None]
  - SKIN DISCOLOURATION [None]
